FAERS Safety Report 4989344-2 (Version None)
Quarter: 2006Q2

REPORT INFORMATION
  Report Type: 
  Country: None (occurrence: None)
  Receive Date: 20060426
  Receipt Date: 20060418
  Transmission Date: 20061013
  Serious: Yes (Death)
  Sender: FDA-Public Use
  Company Number: 2006MP000554

PATIENT
  Age: 68 Year
  Sex: Male

DRUGS (6)
  1. AGGRASTAT [Suspect]
     Indication: ANGINA UNSTABLE
     Dosage: IV
     Route: 042
     Dates: start: 20051001
  2. HEPARIN [Concomitant]
  3. HEPARIN LOW MOLECULAR [Concomitant]
  4. WEIGHT [Concomitant]
  5. INSULIN [Concomitant]
  6. METFORMIN [Concomitant]

REACTIONS (1)
  - DEATH [None]
